FAERS Safety Report 19887018 (Version 3)
Quarter: 2022Q1

REPORT INFORMATION
  Report Type: Spontaneous
  Country: CA (occurrence: CA)
  Receive Date: 20210928
  Receipt Date: 20220311
  Transmission Date: 20220424
  Serious: Yes (Hospitalization, Other)
  Sender: FDA-Public Use
  Company Number: CA-CELLTRION INC.-2020CA023541

PATIENT

DRUGS (13)
  1. INFLECTRA [Suspect]
     Active Substance: INFLIXIMAB-DYYB
     Indication: Crohn^s disease
     Dosage: 600MG (5 MG/KG)  EVERY 8 WEEKS
     Route: 042
     Dates: start: 20200423
  2. INFLECTRA [Suspect]
     Active Substance: INFLIXIMAB-DYYB
     Dosage: 600MG (5 MG/KG)  EVERY 8 WEEKS
     Route: 042
     Dates: start: 20200618
  3. INFLECTRA [Suspect]
     Active Substance: INFLIXIMAB-DYYB
     Dosage: 600MG (5 MG/KG)  EVERY 8 WEEKS
     Route: 042
     Dates: start: 20200813
  4. INFLECTRA [Suspect]
     Active Substance: INFLIXIMAB-DYYB
     Dosage: 600MG (5 MG/KG)  EVERY 8 WEEKS
     Route: 042
     Dates: start: 20201008
  5. INFLECTRA [Suspect]
     Active Substance: INFLIXIMAB-DYYB
     Dosage: 600MG (5 MG/KG) EVERY 8 WEEKS
     Route: 042
     Dates: start: 20201008
  6. INFLECTRA [Suspect]
     Active Substance: INFLIXIMAB-DYYB
     Dosage: 600MG (5 MG/KG) EVERY 8 WEEKS
     Route: 042
     Dates: start: 20201008
  7. INFLECTRA [Suspect]
     Active Substance: INFLIXIMAB-DYYB
     Dosage: 600MG (5 MG/KG)  EVERY 8 WEEKS
     Route: 042
     Dates: start: 20201204
  8. INFLECTRA [Suspect]
     Active Substance: INFLIXIMAB-DYYB
     Dosage: 600MG (5 MG/KG)  EVERY 8 WEEKS
     Route: 042
     Dates: start: 20210129
  9. INFLECTRA [Suspect]
     Active Substance: INFLIXIMAB-DYYB
     Dosage: 600MG (5 MG/KG)  EVERY 8 WEEKS
     Route: 042
     Dates: start: 20210326
  10. INFLECTRA [Suspect]
     Active Substance: INFLIXIMAB-DYYB
     Dosage: 600MG (5 MG/KG)  EVERY 8 WEEKS
     Route: 042
     Dates: start: 20211110
  11. ACETAMINOPHEN [Concomitant]
     Active Substance: ACETAMINOPHEN
     Indication: Premedication
     Dosage: 650 MG, UNK
     Route: 048
     Dates: start: 20200813, end: 20200813
  12. DIPHENHYDRAMINE [Concomitant]
     Active Substance: DIPHENHYDRAMINE
     Indication: Premedication
     Dosage: 50 MG, UNK
     Route: 042
     Dates: start: 20200813, end: 20200813
  13. HYDROCORTISONE [Concomitant]
     Active Substance: HYDROCORTISONE
     Indication: Premedication
     Dosage: 100 MG
     Route: 042
     Dates: start: 20200813, end: 20200813

REACTIONS (7)
  - Nephrolithiasis [Unknown]
  - Renal disorder [Unknown]
  - Gastroenteritis viral [Recovering/Resolving]
  - Blood pressure fluctuation [Unknown]
  - Off label use [Unknown]
  - Off label use [Unknown]
  - Intentional product use issue [Unknown]

NARRATIVE: CASE EVENT DATE: 20200101
